FAERS Safety Report 5745639-6 (Version None)
Quarter: 2008Q2

REPORT INFORMATION
  Report Type: 
  Country: None (occurrence: None)
  Receive Date: 20080521
  Receipt Date: 20080512
  Transmission Date: 20081010
  Serious: Yes (Other)
  Sender: FDA-Public Use
  Company Number: PHHY2008CA02075

PATIENT
  Age: 72 Year
  Sex: Female

DRUGS (4)
  1. ACTONEL [Concomitant]
  2. ASPIRIN [Concomitant]
  3. SALAGEN [Suspect]
     Indication: DRY MOUTH
     Dosage: 5 MG, QD
     Route: 048
     Dates: start: 20070901
  4. SALAGEN [Suspect]
     Dosage: 5 MG, TID
     Route: 048
     Dates: end: 20080127

REACTIONS (2)
  - GASTRIC DISORDER [None]
  - PALPITATIONS [None]
